FAERS Safety Report 20944820 (Version 1)
Quarter: 2022Q2

REPORT INFORMATION
  Report Type: Report from Study
  Country: US (occurrence: None)
  Receive Date: 20220610
  Receipt Date: 20220610
  Transmission Date: 20220720
  Serious: Yes (Hospitalization)
  Sender: FDA-Public Use
  Company Number: US-Eisai Medical Research-EC-2022-114976

PATIENT
  Age: 64 Year
  Sex: Female
  Weight: 98.883 kg

DRUGS (1)
  1. LENVIMA [Suspect]
     Active Substance: LENVATINIB
     Indication: Benign neoplasm of thyroid gland
     Route: 048
     Dates: start: 202205, end: 202205

REACTIONS (6)
  - Blood pressure increased [Unknown]
  - Hypophagia [Unknown]
  - Stomatitis [Unknown]
  - Noninfective gingivitis [Unknown]
  - Myalgia [Unknown]
  - Arthralgia [Unknown]

NARRATIVE: CASE EVENT DATE: 20220501
